FAERS Safety Report 23403249 (Version 1)
Quarter: 2024Q1

REPORT INFORMATION
  Report Type: Spontaneous
  Country: US (occurrence: US)
  Receive Date: 20240116
  Receipt Date: 20240116
  Transmission Date: 20240410
  Serious: Yes (Other)
  Sender: FDA-Public Use
  Company Number: US-AMGEN-USASP2024003668

PATIENT

DRUGS (6)
  1. BEVACIZUMAB [Suspect]
     Active Substance: BEVACIZUMAB
     Indication: Neovascular age-related macular degeneration
     Dosage: UNK
  2. BEVACIZUMAB [Suspect]
     Active Substance: BEVACIZUMAB
     Indication: Diabetic retinopathy
  3. BEVACIZUMAB [Suspect]
     Active Substance: BEVACIZUMAB
     Indication: Diabetic retinal oedema
  4. BEVACIZUMAB [Suspect]
     Active Substance: BEVACIZUMAB
     Indication: Cystoid macular oedema
  5. BEVACIZUMAB [Suspect]
     Active Substance: BEVACIZUMAB
     Indication: Choroidal neovascularisation
  6. BEVACIZUMAB [Suspect]
     Active Substance: BEVACIZUMAB
     Indication: Retinal vein occlusion

REACTIONS (13)
  - Endophthalmitis [Unknown]
  - Retinal detachment [Unknown]
  - Streptococcus test positive [Unknown]
  - Fungal test positive [Unknown]
  - Pseudomonas test positive [Unknown]
  - Staphylococcus test positive [Unknown]
  - Enterococcus test positive [Unknown]
  - Proteus test positive [Unknown]
  - Bacillus test positive [Unknown]
  - Gram stain positive [Unknown]
  - Bacterial test positive [Unknown]
  - Epiretinal membrane [Unknown]
  - Off label use [Unknown]
